FAERS Safety Report 24257984 (Version 1)
Quarter: 2024Q3

REPORT INFORMATION
  Report Type: Spontaneous
  Country: GB (occurrence: GB)
  Receive Date: 20240828
  Receipt Date: 20240828
  Transmission Date: 20241016
  Serious: Yes (Other)
  Sender: TORRENT
  Company Number: None

PATIENT
  Age: 56 Year
  Sex: Female
  Weight: 60 kg

DRUGS (4)
  1. ESCITALOPRAM [Suspect]
     Active Substance: ESCITALOPRAM OXALATE
     Indication: Ill-defined disorder
     Dosage: TAKE ONE A DAY
     Route: 065
     Dates: start: 20240729
  2. ESTRADIOL [Concomitant]
     Active Substance: ESTRADIOL
     Indication: Ill-defined disorder
     Dosage: APPLY ONE TWICE WEEKLY
     Route: 065
     Dates: start: 20240607
  3. ALBUTEROL [Concomitant]
     Active Substance: ALBUTEROL
     Indication: Ill-defined disorder
     Dosage: INHALE TWO DOSES AS NEEDED
     Route: 045
     Dates: start: 20221024
  4. SYMBICORT [Concomitant]
     Active Substance: BUDESONIDE\FORMOTEROL FUMARATE DIHYDRATE
     Indication: Ill-defined disorder
     Dosage: USE TWO PUFFS TWICE A DAY, REDUCING TO ONE PUFF...
     Route: 045
     Dates: start: 20221024

REACTIONS (1)
  - Swelling of eyelid [Recovering/Resolving]
